FAERS Safety Report 18503222 (Version 1)
Quarter: 2020Q4

REPORT INFORMATION
  Report Type: Spontaneous
  Country: CN (occurrence: CN)
  Receive Date: 20201113
  Receipt Date: 20201113
  Transmission Date: 20210114
  Serious: Yes (Hospitalization, Other)
  Sender: FDA-Public Use
  Company Number: CN-ELI_LILLY_AND_COMPANY-CN202011002167

PATIENT
  Age: 62 Year
  Sex: Female

DRUGS (1)
  1. TRULICITY [Suspect]
     Active Substance: DULAGLUTIDE
     Indication: TYPE 2 DIABETES MELLITUS
     Dosage: 1.5 MG, WEEKLY (1/W), EVERY TUESDAY
     Route: 058
     Dates: end: 20200908

REACTIONS (5)
  - Glycosylated haemoglobin increased [Unknown]
  - Rash pruritic [Recovering/Resolving]
  - Blood glucose increased [Unknown]
  - Blood glucose abnormal [Unknown]
  - Discomfort [Unknown]

NARRATIVE: CASE EVENT DATE: 20200908
